FAERS Safety Report 15491100 (Version 3)
Quarter: 2019Q1

REPORT INFORMATION
  Report Type: Spontaneous
  Country: JP (occurrence: JP)
  Receive Date: 20181012
  Receipt Date: 20190110
  Transmission Date: 20190417
  Serious: Yes (Hospitalization)
  Sender: FDA-Public Use
  Company Number: JP-TEVA-201802_00001314

PATIENT
  Age: 79 Year
  Sex: Male

DRUGS (4)
  1. PREDNISOLONE TABLETS 5MG [Suspect]
     Active Substance: PREDNISOLONE
     Indication: ORGANISING PNEUMONIA
     Route: 048
  2. PREDNISOLONE TABLETS 5MG [Suspect]
     Active Substance: PREDNISOLONE
     Route: 048
  3. ACETYLSALICYLIC ACID [Suspect]
     Active Substance: ASPIRIN
     Indication: CEREBRAL INFARCTION
     Route: 048
  4. TAIPROTON CAPSULE 30MG [Suspect]
     Active Substance: LANSOPRAZOLE
     Indication: PRODUCT USED FOR UNKNOWN INDICATION
     Route: 048

REACTIONS (1)
  - Colitis microscopic [Recovering/Resolving]
